FAERS Safety Report 7382389-7 (Version None)
Quarter: 2011Q1

REPORT INFORMATION
  Report Type: 
  Country: None (occurrence: None)
  Receive Date: 20110329
  Receipt Date: 20110224
  Transmission Date: 20110831
  Serious: No
  Sender: FDA-Public Use
  Company Number: US-BAYER-2011-019109

PATIENT

DRUGS (10)
  1. SOMA [Concomitant]
     Indication: OSTEOARTHRITIS
  2. ALEVE (CAPLET) [Suspect]
     Indication: OSTEOARTHRITIS
  3. IBUPROFEN [Concomitant]
     Indication: OSTEOARTHRITIS
  4. RELAFEN [Concomitant]
     Indication: OSTEOARTHRITIS
  5. UNCODEABLE ^UNCLASSIFIABLE^ [Concomitant]
     Indication: OSTEOARTHRITIS
  6. CORTICOSTEROIDS [Concomitant]
     Indication: OSTEOARTHRITIS
  7. TRAMADOL [Concomitant]
     Indication: OSTEOARTHRITIS
  8. ELAVIL [Concomitant]
     Indication: OSTEOARTHRITIS
  9. LYRICA [Concomitant]
     Indication: OSTEOARTHRITIS
  10. MOBIC [Concomitant]
     Indication: OSTEOARTHRITIS

REACTIONS (2)
  - MUSCLE SPASMS [None]
  - OSTEOARTHRITIS [None]
